FAERS Safety Report 6649967-1 (Version None)
Quarter: 2010Q1

REPORT INFORMATION
  Report Type: 
  Country: None (occurrence: None)
  Receive Date: 20100324
  Receipt Date: 20100324
  Transmission Date: 20100710
  Serious: No
  Sender: FDA-Public Use
  Company Number: None

PATIENT
  Age: 9 Year

DRUGS (2)
  1. ZONEGRAN [Suspect]
     Indication: CONVULSION
     Dosage: ONE DAILY
     Dates: start: 20080101
  2. ZONEGRAN [Suspect]
     Indication: PARTIAL SEIZURES
     Dosage: ONE DAILY
     Dates: start: 20080101

REACTIONS (1)
  - NO ADVERSE EVENT [None]
